FAERS Safety Report 19238834 (Version 1)
Quarter: 2021Q2

REPORT INFORMATION
  Report Type: Other
  Country: US (occurrence: US)
  Receive Date: 20210510
  Receipt Date: 20210510
  Transmission Date: 20210717
  Serious: No
  Sender: FDA-Public Use
  Company Number: US-NOVA LABORATORIES LIMITED-2110376

PATIENT
  Age: 20 Year
  Sex: Male

DRUGS (9)
  1. MESALAMINE. [Concomitant]
     Active Substance: MESALAMINE
  2. ADALIMUMAB [Concomitant]
     Active Substance: ADALIMUMAB
  3. CIMETIDINE [Concomitant]
     Active Substance: CIMETIDINE
  4. VEDOLIZUMAB [Concomitant]
     Active Substance: VEDOLIZUMAB
  5. PURIXAN [Suspect]
     Active Substance: MERCAPTOPURINE
     Indication: CROHN^S DISEASE
  6. AZATHIOPRINE. [Concomitant]
     Active Substance: AZATHIOPRINE
  7. INFLIXIMAB [Concomitant]
     Active Substance: INFLIXIMAB
  8. CERTOLIZUMAB [Concomitant]
     Active Substance: CERTOLIZUMAB
  9. METHOTREXATE. [Concomitant]
     Active Substance: METHOTREXATE

REACTIONS (1)
  - Off label use [None]
